FAERS Safety Report 18852970 (Version 2)
Quarter: 2021Q1

REPORT INFORMATION
  Report Type: Spontaneous
  Country: JP (occurrence: JP)
  Receive Date: 20210205
  Receipt Date: 20210312
  Transmission Date: 20210420
  Serious: Yes (Other)
  Sender: FDA-Public Use
  Company Number: JP-SUNOVION-2021DSP001445

PATIENT
  Age: 83 Year
  Sex: Female
  Weight: 53.5 kg

DRUGS (9)
  1. LONASEN [Suspect]
     Active Substance: BLONANSERIN
     Indication: HALLUCINATION, AUDITORY
     Dosage: UNK
     Route: 048
     Dates: start: 201808
  2. RISPERIDONE. [Concomitant]
     Active Substance: RISPERIDONE
     Dosage: 2 MG, QD
     Route: 048
     Dates: start: 20201201, end: 20201210
  3. RISPERIDONE. [Concomitant]
     Active Substance: RISPERIDONE
     Dosage: 2 MG, BID
     Route: 048
     Dates: start: 20201111, end: 20201130
  4. LATUDA [Suspect]
     Active Substance: LURASIDONE HYDROCHLORIDE
     Dosage: 40 MG, QD
     Route: 048
     Dates: start: 20201211, end: 20201211
  5. ABILIFY [Concomitant]
     Active Substance: ARIPIPRAZOLE
     Indication: SCHIZOPHRENIA
     Dosage: 400 MG, Q4WEEKS
     Route: 030
     Dates: start: 20191220
  6. RISPERIDONE. [Concomitant]
     Active Substance: RISPERIDONE
     Indication: SCHIZOPHRENIA
     Dosage: 1 MG, BID
     Route: 048
     Dates: start: 20201106, end: 20201110
  7. RISPERIDONE. [Concomitant]
     Active Substance: RISPERIDONE
     Dosage: 2 MG, BID
     Route: 048
     Dates: start: 20201212, end: 20201220
  8. LATUDA [Suspect]
     Active Substance: LURASIDONE HYDROCHLORIDE
     Indication: SCHIZOPHRENIA
     Dosage: 20 MG, QD
     Route: 048
     Dates: start: 20201201, end: 20201210
  9. RISPERIDONE. [Concomitant]
     Active Substance: RISPERIDONE
     Dosage: 4.5 MG, QD
     Route: 048
     Dates: start: 20201221

REACTIONS (4)
  - Insomnia [Recovering/Resolving]
  - Headache [Unknown]
  - Underdose [Unknown]
  - Hallucination, auditory [Recovering/Resolving]

NARRATIVE: CASE EVENT DATE: 20201210
